FAERS Safety Report 4706524-1 (Version None)
Quarter: 2005Q2

REPORT INFORMATION
  Report Type: 
  Country: None (occurrence: None)
  Receive Date: 20050114
  Receipt Date: 20050114
  Transmission Date: 20051028
  Serious: No
  Sender: FDA-Public Use
  Company Number: None

PATIENT
  Sex: Female
  Weight: 192.3251 kg

DRUGS (1)
  1. ZAROXOLYN [Suspect]
     Indication: HYPERTENSION
     Dosage: 5 Q D

REACTIONS (1)
  - RASH [None]
